FAERS Safety Report 9679949 (Version 3)
Quarter: 2014Q2

REPORT INFORMATION
  Report Type: Report from Study
  Country: JP (occurrence: JP)
  Receive Date: 20131110
  Receipt Date: 20140527
  Transmission Date: 20141212
  Serious: Yes (Other)
  Sender: FDA-Public Use
  Company Number: PHHY2013JP127221

PATIENT
  Age: 56 Year
  Sex: Female

DRUGS (1)
  1. ACZ885 [Suspect]
     Indication: CRYOPYRIN ASSOCIATED PERIODIC SYNDROME
     Dosage: 150 MG, UNK
     Route: 058
     Dates: start: 20131003, end: 20140203

REACTIONS (4)
  - Amyloidosis [Unknown]
  - Arrhythmia [Unknown]
  - Hypertension [Recovering/Resolving]
  - Amylase increased [Unknown]
